FAERS Safety Report 16966444 (Version 1)
Quarter: 2019Q4

REPORT INFORMATION
  Report Type: Report from Study
  Country: KR (occurrence: KR)
  Receive Date: 20191028
  Receipt Date: 20191028
  Transmission Date: 20200122
  Serious: Yes (Hospitalization)
  Sender: FDA-Public Use
  Company Number: PHHO2016KR017261

PATIENT
  Age: 52 Year
  Sex: Female
  Weight: 65.5 kg

DRUGS (7)
  1. COAPROVEL [Concomitant]
     Active Substance: HYDROCHLOROTHIAZIDE\IRBESARTAN
     Indication: HYPERTENSION
     Dosage: 300/12.5, MG, QD
     Route: 048
     Dates: start: 2003, end: 20161104
  2. CERITINIB [Suspect]
     Active Substance: CERITINIB
     Dosage: 600 MG
     Route: 048
     Dates: start: 20161202
  3. LIPITOR [Concomitant]
     Active Substance: ATORVASTATIN CALCIUM
     Indication: HYPERLIPIDAEMIA
     Dosage: 10 MG, QD
     Route: 048
     Dates: start: 2015, end: 20161104
  4. HYOSCINE-N-BUTYLBROMIDE [Concomitant]
     Active Substance: BUTYLSCOPOLAMINE BROMIDE
     Indication: ABDOMINAL PAIN
     Dosage: 10 MG, PRN
     Route: 048
     Dates: start: 20160902
  5. CERITINIB [Suspect]
     Active Substance: CERITINIB
     Dosage: 600 MG
     Route: 048
     Dates: start: 20161031, end: 20161109
  6. LOPERAMIDE [Concomitant]
     Active Substance: LOPERAMIDE
     Indication: DIARRHOEA
     Dosage: 2 MG, PRN
     Route: 048
     Dates: start: 20160820
  7. CERITINIB [Suspect]
     Active Substance: CERITINIB
     Indication: NON-SMALL CELL LUNG CANCER
     Dosage: 750 MG
     Route: 048
     Dates: start: 20160816, end: 20161018

REACTIONS (1)
  - Renal cyst [Recovered/Resolved]

NARRATIVE: CASE EVENT DATE: 20161105
